FAERS Safety Report 10666971 (Version 3)
Quarter: 2015Q1

REPORT INFORMATION
  Report Type: Report from Study
  Country: US (occurrence: US)
  Receive Date: 20141222
  Receipt Date: 20150126
  Transmission Date: 20150720
  Serious: Yes (Other)
  Sender: FDA-Public Use
  Company Number: US-BIOGENIDEC-2014BI113403

PATIENT
  Age: 43 Year
  Sex: Female

DRUGS (16)
  1. VIMPAT [Concomitant]
     Active Substance: LACOSAMIDE
  2. ROPINIROLE. [Concomitant]
     Active Substance: ROPINIROLE
  3. TECFIDERA [Suspect]
     Active Substance: DIMETHYL FUMARATE
     Indication: MULTIPLE SCLEROSIS
     Route: 048
     Dates: start: 201304
  4. ALPRAZOLAM. [Concomitant]
     Active Substance: ALPRAZOLAM
  5. GABAPENTIN. [Concomitant]
     Active Substance: GABAPENTIN
  6. TYLENOL [Concomitant]
     Active Substance: ACETAMINOPHEN
  7. DULOXETINE [Concomitant]
     Active Substance: DULOXETINE
  8. TRAZODONE [Concomitant]
     Active Substance: TRAZODONE HYDROCHLORIDE
  9. TECFIDERA [Suspect]
     Active Substance: DIMETHYL FUMARATE
     Indication: MULTIPLE SCLEROSIS
     Route: 048
     Dates: start: 201403, end: 20141021
  10. TEGRETOL [Concomitant]
     Active Substance: CARBAMAZEPINE
  11. BACLOFEN. [Concomitant]
     Active Substance: BACLOFEN
  12. DIVALPROEX [Concomitant]
     Active Substance: DIVALPROEX SODIUM
  13. HYDROXYZINE [Concomitant]
     Active Substance: HYDROXYZINE\HYDROXYZINE HYDROCHLORIDE
  14. ALEVE [Concomitant]
     Active Substance: NAPROXEN SODIUM
  15. ECOTRIN [Concomitant]
     Active Substance: ASPIRIN
  16. ZOLPIDEM [Concomitant]
     Active Substance: ZOLPIDEM\ZOLPIDEM TARTRATE

REACTIONS (8)
  - Drug ineffective [Unknown]
  - Balance disorder [Unknown]
  - Diplopia [Unknown]
  - Seizure [Unknown]
  - Multiple sclerosis relapse [Unknown]
  - Sleep apnoea syndrome [Unknown]
  - Dizziness [Unknown]
  - Tremor [Unknown]

NARRATIVE: CASE EVENT DATE: 201406
